FAERS Safety Report 5276060-5 (Version None)
Quarter: 2007Q1

REPORT INFORMATION
  Report Type: 
  Country: None (occurrence: None)
  Receive Date: 20061213
  Receipt Date: 20060425
  Transmission Date: 20070707
  Serious: Yes (Hospitalization)
  Sender: FDA-Public Use
  Company Number: 2006UW07462

PATIENT
  Age: 14 Year
  Sex: Female

DRUGS (13)
  1. SEROQUEL [Suspect]
     Indication: MANIA
     Dosage: 100 - 200 MG
     Dates: start: 20051201
  2. SEROQUEL [Suspect]
     Indication: MANIA
     Dosage: 400 MG HS, 100 MG BID;PRN
     Dates: start: 20060113
  3. SEROQUEL [Suspect]
     Indication: MANIA
     Dosage: 200 MG HS, 50 MG BID PRN
     Dates: end: 20060302
  4. SEROQUEL [Suspect]
     Indication: MANIA
     Dosage: 50 MG; PO
     Route: 048
  5. ABILIFY [Suspect]
     Dosage: 5 MG
     Dates: start: 20060120
  6. ABILIFY [Suspect]
     Dosage: 7.5 MG
     Dates: start: 20060126
  7. ABILIFY [Suspect]
     Dosage: 10 MG
     Dates: start: 20060130
  8. ABILIFY [Suspect]
     Dosage: 5 MG
     Dates: start: 20060203
  9. ABILIFY [Suspect]
     Dosage: 7.5 MG
     Dates: start: 20060207
  10. ABILIFY [Suspect]
     Dosage: 5 MG
  11. ABILIFY [Suspect]
     Dosage: 2.5 MG
     Dates: end: 20060308
  12. LITHIUM CARBONATE [Concomitant]
  13. LEXAPRO [Concomitant]

REACTIONS (2)
  - EXTRAPYRAMIDAL DISORDER [None]
  - SUICIDAL IDEATION [None]
